FAERS Safety Report 6007978-3 (Version None)
Quarter: 2008Q4

REPORT INFORMATION
  Report Type: 
  Country: None (occurrence: None)
  Receive Date: 20081217
  Receipt Date: 20080623
  Transmission Date: 20090506
  Serious: No
  Sender: FDA-Public Use
  Company Number: US-ASTRAZENECA-2008UW12597

PATIENT
  Age: 57 Year
  Sex: Female

DRUGS (5)
  1. CRESTOR [Suspect]
     Route: 048
     Dates: start: 20070401
  2. VERAPAMIL [Concomitant]
  3. PROZAC [Concomitant]
  4. MONOPRIL [Concomitant]
  5. IBUPROFEN [Concomitant]

REACTIONS (2)
  - DRUG INEFFECTIVE [None]
  - MENTAL IMPAIRMENT [None]
